FAERS Safety Report 9507741 (Version 1)
Quarter: 2013Q3

REPORT INFORMATION
  Report Type: Spontaneous
  Country: US (occurrence: None)
  Receive Date: 20130906
  Receipt Date: 20130906
  Transmission Date: 20140515
  Serious: Yes (Hospitalization)
  Sender: FDA-Public Use
  Company Number: None

PATIENT
  Sex: Male

DRUGS (2)
  1. SENSIPAR [Suspect]
     Indication: HYPERPARATHYROIDISM SECONDARY
     Dosage: SENSIPAR 30MG 1 TABLET PO
     Route: 048
     Dates: start: 20120718
  2. SENSIPAR [Suspect]
     Indication: RENAL DISORDER
     Dosage: SENSIPAR 30MG 1 TABLET PO
     Route: 048
     Dates: start: 20120718

REACTIONS (2)
  - Hospitalisation [None]
  - Refusal of treatment by patient [None]
